FAERS Safety Report 12551495 (Version 2)
Quarter: 2016Q3

REPORT INFORMATION
  Report Type: Spontaneous
  Country: GB (occurrence: GB)
  Receive Date: 20160713
  Receipt Date: 20160810
  Transmission Date: 20161109
  Serious: Yes (Hospitalization)
  Sender: FDA-Public Use
  Company Number: GB-ACCORD-042197

PATIENT
  Age: 65 Year
  Sex: Female

DRUGS (17)
  1. ASPIRIN. [Concomitant]
     Active Substance: ASPIRIN
  2. LEVEMIR [Concomitant]
     Active Substance: INSULIN DETEMIR
  3. SIMVASTATIN. [Concomitant]
     Active Substance: SIMVASTATIN
  4. PREDNISOLONE. [Concomitant]
     Active Substance: PREDNISOLONE
  5. BUTRANS [Concomitant]
     Active Substance: BUPRENORPHINE
  6. COTRIMOXAZOLE [Concomitant]
     Active Substance: SULFAMETHOXAZOLE\TRIMETHOPRIM
  7. DOXAZOSIN [Concomitant]
     Active Substance: DOXAZOSIN\DOXAZOSIN MESYLATE
  8. CLARITHROMYCIN/CLARITHROMYCIN LACTOBIONATE [Interacting]
     Active Substance: CLARITHROMYCIN LACTOBIONATE
     Indication: LOWER RESPIRATORY TRACT INFECTION
     Route: 048
     Dates: start: 20160310, end: 20160315
  9. DOXYCYCLINE. [Concomitant]
     Active Substance: DOXYCYCLINE
     Indication: LOWER RESPIRATORY TRACT INFECTION
  10. AMOXICILLIN. [Concomitant]
     Active Substance: AMOXICILLIN
     Indication: LOWER RESPIRATORY TRACT INFECTION
  11. TACROLIMUS. [Suspect]
     Active Substance: TACROLIMUS
     Indication: PROPHYLAXIS AGAINST TRANSPLANT REJECTION
     Route: 048
     Dates: start: 20160310
  12. EPREX [Concomitant]
     Active Substance: ERYTHROPOIETIN
  13. MYCOPHENOLIC ACID. [Concomitant]
     Active Substance: MYCOPHENOLIC ACID
  14. BUMETANIDE. [Concomitant]
     Active Substance: BUMETANIDE
  15. GABAPENTIN. [Concomitant]
     Active Substance: GABAPENTIN
  16. NOVORAPID [Concomitant]
     Active Substance: INSULIN ASPART
  17. OMEPRAZOLE. [Concomitant]
     Active Substance: OMEPRAZOLE

REACTIONS (4)
  - Drug interaction [Unknown]
  - Immunosuppressant drug level increased [Recovered/Resolved]
  - Labelled drug-drug interaction medication error [Unknown]
  - Renal impairment [Unknown]

NARRATIVE: CASE EVENT DATE: 20160317
